FAERS Safety Report 25765330 (Version 1)
Quarter: 2025Q3

REPORT INFORMATION
  Report Type: Spontaneous
  Country: US (occurrence: US)
  Receive Date: 20250905
  Receipt Date: 20250905
  Transmission Date: 20251020
  Serious: No
  Sender: AIPING PHARMACEUTICAL
  Company Number: US-AIPING-2025AISPO00112

PATIENT

DRUGS (1)
  1. OXYBUTYNIN CHLORIDE [Suspect]
     Active Substance: OXYBUTYNIN CHLORIDE
     Indication: Product used for unknown indication
     Route: 065

REACTIONS (3)
  - Dental caries [Unknown]
  - Toothache [Unknown]
  - Dry mouth [Unknown]
